FAERS Safety Report 5713233-9 (Version None)
Quarter: 2008Q2

REPORT INFORMATION
  Report Type: 
  Country: None (occurrence: None)
  Receive Date: 20080422
  Receipt Date: 19990805
  Transmission Date: 20081010
  Serious: Yes (Death, Hospitalization)
  Sender: FDA-Public Use
  Company Number: GB-ROCHE-212699

PATIENT
  Sex: Female
  Weight: 37 kg

DRUGS (1)
  1. CAPECITABINE [Suspect]
     Dosage: INTERMITTENT THERAPY: 14 DAYS TREATMENT FOLLOWED BY ONE WEEK REST
     Route: 048
     Dates: start: 19990324, end: 19990408

REACTIONS (5)
  - ASTHENIA [None]
  - DEATH [None]
  - DEHYDRATION [None]
  - SOMNOLENCE [None]
  - VOMITING [None]
